FAERS Safety Report 13377804 (Version 4)
Quarter: 2017Q2

REPORT INFORMATION
  Report Type: Report from Study
  Country: GB (occurrence: GB)
  Receive Date: 20170328
  Receipt Date: 20170516
  Transmission Date: 20170830
  Serious: Yes (Hospitalization)
  Sender: FDA-Public Use
  Company Number: GB-PFIZER INC-2017119206

PATIENT
  Age: 53 Year
  Sex: Female
  Weight: 63.5 kg

DRUGS (14)
  1. CCT245737 [Suspect]
     Active Substance: INVESTIGATIONAL PRODUCT
     Indication: ANAL SQUAMOUS CELL CARCINOMA
     Dosage: 20 MG, SINGLE (ON DAY -7)
     Route: 048
     Dates: start: 20170104
  2. ADCAL D3 [Concomitant]
     Active Substance: CALCIUM CARBONATE\CHOLECALCIFEROL
     Dosage: UNK
  3. PEPTAC /00550802/ [Concomitant]
     Dosage: UNK
     Route: 048
  4. CISPLATIN. [Suspect]
     Active Substance: CISPLATIN
     Indication: ANAL SQUAMOUS CELL CARCINOMA
     Dosage: 80 MG/M2, CYCLIC (QD DAY 1 OF EACH 21 DAY CYCLE)
     Route: 042
     Dates: start: 20170111
  5. CCT245737 [Suspect]
     Active Substance: INVESTIGATIONAL PRODUCT
     Dosage: 20 MG, CYCLIC (QD ON DAYS 2, 3, 9 AND 10 OF A 21 DAY CYCLE)
     Route: 048
     Dates: start: 20170112
  6. NAPROXEN. [Concomitant]
     Active Substance: NAPROXEN
     Dosage: UNK
  7. PARACETAMOL [Concomitant]
     Active Substance: ACETAMINOPHEN
     Dosage: UNK
  8. GLYCERYL TRINITRATE [Concomitant]
     Active Substance: NITROGLYCERIN
     Dosage: UNK
  9. CLONAZEPAM. [Concomitant]
     Active Substance: CLONAZEPAM
  10. OMEPRAZOLE. [Concomitant]
     Active Substance: OMEPRAZOLE
     Dosage: UNK
  11. LAXIDO ORANGE [Concomitant]
     Dosage: UNK
  12. ASPIRIN /00002701/ [Concomitant]
     Active Substance: ASPIRIN
     Dosage: UNK
  13. GEMCITABINE HYDROCHLORIDE. [Suspect]
     Active Substance: GEMCITABINE HYDROCHLORIDE
     Indication: ANAL SQUAMOUS CELL CARCINOMA
     Dosage: 600 MG/M2, CYCLIC (QD ON DAYS 1 AND 8 OF A 21 DAY CYCLE)
     Route: 042
     Dates: start: 20170111
  14. LYRICA [Concomitant]
     Active Substance: PREGABALIN
     Dosage: UNK

REACTIONS (3)
  - Non-cardiac chest pain [Recovered/Resolved]
  - Confusional state [Recovered/Resolved]
  - Dysaesthesia [Recovered/Resolved]

NARRATIVE: CASE EVENT DATE: 20170302
